FAERS Safety Report 23841495 (Version 1)
Quarter: 2024Q2

REPORT INFORMATION
  Report Type: Spontaneous
  Country: US (occurrence: None)
  Receive Date: 20240509
  Receipt Date: 20240509
  Transmission Date: 20240716
  Serious: Yes (Hospitalization)
  Sender: FDA-Public Use
  Company Number: None

PATIENT
  Age: 74 Year
  Sex: Male

DRUGS (9)
  1. GENGRAF [Suspect]
     Active Substance: CYCLOSPORINE
     Indication: Renal transplant
     Dosage: OTHER QUANTITY : 100MG/75MG;?OTHER FREQUENCY : 4 CAP AM-3 CAP PM;?
     Route: 048
     Dates: start: 20210324
  2. ASCORBIC ACD [Concomitant]
  3. CALCIUM CIT/TAB VIT D [Concomitant]
  4. COPPER POW GLUCOAT [Concomitant]
  5. EVEROLIMUS [Concomitant]
     Active Substance: EVEROLIMUS
  6. GENGRAF [Concomitant]
     Active Substance: CYCLOSPORINE
  7. LISINOPRIL [Concomitant]
  8. MYFORTIC [Concomitant]
     Active Substance: MYCOPHENOLATE SODIUM
  9. PREDNISONE [Concomitant]

REACTIONS (1)
  - Ankle operation [None]

NARRATIVE: CASE EVENT DATE: 20240412
